FAERS Safety Report 25934966 (Version 1)
Quarter: 2025Q4

REPORT INFORMATION
  Report Type: Spontaneous
  Country: EU (occurrence: EU)
  Receive Date: 20251017
  Receipt Date: 20251017
  Transmission Date: 20260118
  Serious: Yes (Hospitalization, Other)
  Sender: DR REDDYS
  Company Number: None

PATIENT
  Age: 77 Year

DRUGS (11)
  1. RAMIPRIL [Suspect]
     Active Substance: RAMIPRIL
     Indication: Hypertension
     Dosage: UNK
     Route: 065
  2. RAMIPRIL [Suspect]
     Active Substance: RAMIPRIL
     Dosage: 5 MG AFTER BREAKFAST. AFTER LUNCH 07-MAR-2025 00:00
     Route: 065
  3. PANTOPRAZOLE [Suspect]
     Active Substance: PANTOPRAZOLE
     Indication: Product used for unknown indication
     Dosage: UNK
     Route: 065
  4. VALSARTAN [Suspect]
     Active Substance: VALSARTAN
     Indication: Hypertension
     Dosage: UNK
     Route: 065
  5. LISINOPRIL [Suspect]
     Active Substance: LISINOPRIL
     Indication: Hypertension
     Dosage: UNK
     Route: 065
  6. LEVOTHYROXINE SODIUM [Suspect]
     Active Substance: LEVOTHYROXINE SODIUM
     Indication: Goitre
     Dosage: UNK
     Route: 065
  7. LEVOTHYROXINE SODIUM [Suspect]
     Active Substance: LEVOTHYROXINE SODIUM
     Dosage: 75 BEFORE BREAKFAST
     Route: 065
     Dates: start: 20250307
  8. AMLODIPINE [Suspect]
     Active Substance: AMLODIPINE BESYLATE
     Indication: Hypertension
     Dosage: UNK
     Route: 065
  9. PIRETANIDE\RAMIPRIL [Suspect]
     Active Substance: PIRETANIDE\RAMIPRIL
     Indication: Hypertension
     Dosage: 40 MG IN THE MORNING AND EVENING
     Route: 065
  10. URAPIDIL [Suspect]
     Active Substance: URAPIDIL
     Indication: Hypertension
     Dosage: ??-???-2024 00:00
     Route: 065
  11. NIFEDIPINE [Suspect]
     Active Substance: NIFEDIPINE
     Indication: Hypertension
     Dosage: UNK
     Route: 065

REACTIONS (20)
  - Thyroid operation [Unknown]
  - Cerebral haemorrhage [Unknown]
  - Osteorrhagia [Unknown]
  - Loss of consciousness [Unknown]
  - Head injury [Unknown]
  - Dementia [Unknown]
  - Influenza [Unknown]
  - Back pain [Unknown]
  - Balance disorder [Not Recovered/Not Resolved]
  - Chest pain [Unknown]
  - Memory impairment [Unknown]
  - Tremor [Unknown]
  - Tinnitus [Unknown]
  - Flatulence [Unknown]
  - Hypotension [Unknown]
  - Respiration abnormal [Unknown]
  - Throat tightness [Unknown]
  - Bowel movement irregularity [Unknown]
  - Headache [Unknown]
  - Wrong technique in product usage process [Unknown]

NARRATIVE: CASE EVENT DATE: 20050101
